FAERS Safety Report 16092557 (Version 1)
Quarter: 2019Q1

REPORT INFORMATION
  Report Type: Report from Study
  Country: DE (occurrence: DE)
  Receive Date: 20190319
  Receipt Date: 20190319
  Transmission Date: 20190418
  Serious: Yes (Other)
  Sender: FDA-Public Use
  Company Number: PHHY2019DE060661

PATIENT
  Age: 60 Year
  Sex: Male

DRUGS (1)
  1. KYMRIAH [Suspect]
     Active Substance: TISAGENLECLEUCEL
     Indication: DIFFUSE LARGE B-CELL LYMPHOMA
     Dosage: 1 DF, ONCE/SINGLE
     Route: 041
     Dates: start: 2018

REACTIONS (6)
  - Hepatic failure [Unknown]
  - Renal failure [Unknown]
  - Coagulopathy [Unknown]
  - Haemophagocytic lymphohistiocytosis [Unknown]
  - Cytokine release syndrome [Not Recovered/Not Resolved]
  - Tic [Unknown]

NARRATIVE: CASE EVENT DATE: 2018
